FAERS Safety Report 13878645 (Version 3)
Quarter: 2017Q3

REPORT INFORMATION
  Report Type: Spontaneous
  Country: EE (occurrence: EE)
  Receive Date: 20170817
  Receipt Date: 20170912
  Transmission Date: 20171127
  Serious: Yes (Death, Hospitalization)
  Sender: FDA-Public Use
  Company Number: EE-SA-2017SA148923

PATIENT
  Age: 58 Year
  Sex: Female

DRUGS (13)
  1. MAREVAN [Suspect]
     Active Substance: WARFARIN SODIUM
     Indication: ATRIAL FIBRILLATION
     Route: 048
     Dates: start: 20170720
  2. CARBAMAZEPINE. [Concomitant]
     Active Substance: CARBAMAZEPINE
     Indication: EPILEPSY
     Route: 048
  3. TORASEMIDE [Concomitant]
     Active Substance: TORSEMIDE
     Route: 048
  4. CLEXANE [Suspect]
     Active Substance: ENOXAPARIN SODIUM
     Indication: ATRIAL FIBRILLATION
     Route: 058
     Dates: start: 201707
  5. METOPROLOL. [Concomitant]
     Active Substance: METOPROLOL
     Route: 048
  6. SPIRIX [Concomitant]
     Active Substance: SPIRONOLACTONE
     Route: 048
  7. MAREVAN [Suspect]
     Active Substance: WARFARIN SODIUM
     Indication: TRICUSPID VALVE INCOMPETENCE
     Route: 048
     Dates: end: 20170714
  8. ATORVASTATIN [Concomitant]
     Active Substance: ATORVASTATIN
     Route: 048
  9. ENALAPRIL [Concomitant]
     Active Substance: ENALAPRIL
     Route: 048
  10. MAREVAN [Suspect]
     Active Substance: WARFARIN SODIUM
     Indication: TRICUSPID VALVE INCOMPETENCE
     Route: 048
     Dates: start: 20170720
  11. NEXIUM [Concomitant]
     Active Substance: ESOMEPRAZOLE MAGNESIUM
     Indication: GASTRIC ULCER
     Route: 048
     Dates: start: 20160118
  12. MAREVAN [Suspect]
     Active Substance: WARFARIN SODIUM
     Indication: ATRIAL FIBRILLATION
     Route: 048
     Dates: end: 20170714
  13. ALLOPURINOL. [Concomitant]
     Active Substance: ALLOPURINOL
     Route: 048

REACTIONS (20)
  - Ear infection [Unknown]
  - Epistaxis [Unknown]
  - Cerebral haemorrhage [Fatal]
  - Headache [Unknown]
  - Nystagmus [Unknown]
  - Hydrocephalus [Unknown]
  - Hypertension [Unknown]
  - Ear haemorrhage [Unknown]
  - Ear discomfort [Unknown]
  - Dizziness [Unknown]
  - Cough [Unknown]
  - Asthenia [Unknown]
  - Respiration abnormal [Unknown]
  - Mastoiditis [Unknown]
  - Haemorrhage [Unknown]
  - Tachycardia [Unknown]
  - Contusion [Unknown]
  - Brain oedema [Unknown]
  - Coma [Unknown]
  - Pyrexia [Unknown]

NARRATIVE: CASE EVENT DATE: 201707
